FAERS Safety Report 11195829 (Version 3)
Quarter: 2017Q3

REPORT INFORMATION
  Report Type: Spontaneous
  Country: FR (occurrence: FR)
  Receive Date: 20150617
  Receipt Date: 20170922
  Transmission Date: 20171127
  Serious: Yes (Other)
  Sender: FDA-Public Use
  Company Number: FR-AMGEN-FRASP2015057630

PATIENT
  Age: 89 Year
  Sex: Female
  Weight: 52 kg

DRUGS (4)
  1. PROLIA [Suspect]
     Active Substance: DENOSUMAB
     Indication: OSTEOPOROSIS POSTMENOPAUSAL
     Dosage: 60 MG, UNK
     Route: 065
     Dates: start: 20150220
  2. LEVOTHYROX [Concomitant]
     Active Substance: LEVOTHYROXINE
     Dosage: 1.5 DF (25), QD
  3. LEVOTHYROX [Concomitant]
     Active Substance: LEVOTHYROXINE
     Dosage: 1 1/4 DF (25), QD
  4. LEVOTHYROX [Concomitant]
     Active Substance: LEVOTHYROXINE
     Dosage: 1 DF (25), QD

REACTIONS (4)
  - Dizziness [Unknown]
  - Feeling drunk [Unknown]
  - Age-related macular degeneration [Unknown]
  - Fatigue [Unknown]

NARRATIVE: CASE EVENT DATE: 20150303
